FAERS Safety Report 25198931 (Version 1)
Quarter: 2025Q2

REPORT INFORMATION
  Report Type: Other
  Country: US (occurrence: US)
  Receive Date: 20250415
  Receipt Date: 20250415
  Transmission Date: 20250717
  Serious: Yes (Other)
  Sender: OMNIVIUM PHARMACEUTICALS LLC
  Company Number: US-Omnivium Pharmaceuticals LLC-2174929

PATIENT
  Age: 86 Year
  Sex: Female

DRUGS (1)
  1. GLYCOPYRROLATE [Suspect]
     Active Substance: GLYCOPYRROLATE
     Indication: Sinus bradycardia

REACTIONS (1)
  - Stress cardiomyopathy [Recovered/Resolved]
